FAERS Safety Report 11311570 (Version 9)
Quarter: 2018Q1

REPORT INFORMATION
  Report Type: Report from Study
  Country: AU (occurrence: AU)
  Receive Date: 20150727
  Receipt Date: 20180101
  Transmission Date: 20180508
  Serious: Yes (Hospitalization)
  Sender: FDA-Public Use
  Company Number: AU-ROCHE-1609690

PATIENT
  Age: 83 Year
  Sex: Male
  Weight: 75 kg

DRUGS (25)
  1. OBINUTUZUMAB. [Suspect]
     Active Substance: OBINUTUZUMAB
     Route: 042
     Dates: start: 20150804
  2. ATENOLOL. [Suspect]
     Active Substance: ATENOLOL
     Indication: HYPERTENSION
     Route: 065
  3. NEXIUM [Concomitant]
     Active Substance: ESOMEPRAZOLE MAGNESIUM
     Dosage: SWOLLOW WHOLE TABLET AS REQUIRED.
     Route: 065
  4. BION TEARS [Concomitant]
     Active Substance: DEXTRAN 70\HYPROMELLOSE 2910 (4000 MPA.S)
     Indication: DRY EYE
     Dosage: STRENGTH: 0.3-0.1%, 0.4ML MINIMS.
     Route: 065
  5. LYRICA [Concomitant]
     Active Substance: PREGABALIN
     Indication: NEURALGIA
     Route: 065
  6. BACTRIM DS [Concomitant]
     Active Substance: SULFAMETHOXAZOLE\TRIMETHOPRIM
     Dosage: 160-800 MG?RESTARTED.
     Route: 065
     Dates: start: 20160214
  7. HYPROMELLOSE [Concomitant]
     Active Substance: HYPROMELLOSES
     Indication: DRY EYE
     Route: 065
  8. SENNA [Concomitant]
     Active Substance: SENNA LEAF\SENNOSIDES\SENNOSIDES A AND B
     Indication: CONSTIPATION
     Route: 065
  9. DYMADON P [Concomitant]
     Indication: PAIN
     Route: 065
  10. SODIUM BICARBONATE. [Concomitant]
     Active Substance: SODIUM BICARBONATE
     Dosage: BRAND: ORION. MOUTH WASH, DO NOT SWOLLOW.
     Route: 065
  11. OBINUTUZUMAB. [Suspect]
     Active Substance: OBINUTUZUMAB
     Indication: CHRONIC LYMPHOCYTIC LEUKAEMIA
     Dosage: C1D1 (100 MG); LAST DOSE PRIOR TO ONSET OF EVENT, LOSS OF CONSCIOUSNESS: ON 09/JUL/2015 (C1D2, 900MG
     Route: 042
     Dates: start: 20150708, end: 20151124
  12. CHLORAMBUCIL [Suspect]
     Active Substance: CHLORAMBUCIL
     Indication: CHRONIC LYMPHOCYTIC LEUKAEMIA
     Dosage: MOST RECENT DOSE PRIOR TO ONSET OF EVENT CONSTIPATION: 08/JUL/2015. DOSE DELAYED AND STOPPED ON 14/J
     Route: 048
     Dates: start: 20150708, end: 20151208
  13. ATENOLOL. [Suspect]
     Active Substance: ATENOLOL
     Route: 065
  14. ASPIRIN. [Concomitant]
     Active Substance: ASPIRIN
     Indication: PROPHYLAXIS
     Route: 065
  15. DYMADON P [Concomitant]
     Indication: PYREXIA
  16. PROLIA [Concomitant]
     Active Substance: DENOSUMAB
     Indication: OSTEOPOROSIS
     Dosage: 60MG/ML
     Route: 065
  17. ZINC OXIDE. [Concomitant]
     Active Substance: ZINC OXIDE
     Indication: SKIN DISORDER
     Route: 065
  18. ALLOHEXAL [Concomitant]
     Route: 065
  19. OSTEVIT-D [Concomitant]
     Indication: VITAMIN SUPPLEMENTATION
     Route: 065
  20. MACROGOL 3350 [Concomitant]
     Active Substance: POLYETHYLENE GLYCOL 3350
     Indication: CONSTIPATION
     Route: 065
  21. CHLORAMBUCIL [Suspect]
     Active Substance: CHLORAMBUCIL
     Route: 048
     Dates: start: 20150804
  22. AVANZA [Concomitant]
     Active Substance: MIRTAZAPINE
     Indication: DEPRESSED MOOD
     Route: 065
  23. MAXOLON [Concomitant]
     Active Substance: METOCLOPRAMIDE HYDROCHLORIDE
     Indication: NAUSEA
     Dosage: DOSE: 1 TO 2 TABLETS
     Route: 065
  24. SOMAC [Concomitant]
     Active Substance: PANTOPRAZOLE SODIUM
     Indication: GASTROOESOPHAGEAL REFLUX DISEASE
     Route: 065
  25. SALINE EYE DROPS (UNK INGREDIENTS) [Concomitant]
     Indication: FOREIGN BODY SENSATION IN EYES
     Route: 065

REACTIONS (3)
  - Constipation [Not Recovered/Not Resolved]
  - Loss of consciousness [Recovered/Resolved]
  - Urinary retention [Not Recovered/Not Resolved]

NARRATIVE: CASE EVENT DATE: 20150714
